FAERS Safety Report 6699349-1 (Version None)
Quarter: 2010Q2

REPORT INFORMATION
  Report Type: 
  Country: None (occurrence: None)
  Receive Date: 20100427
  Receipt Date: 20100416
  Transmission Date: 20101027
  Serious: No
  Sender: FDA-Public Use
  Company Number: US-B.I. PHARMACEUTICALS,INC./RIDGEFIELD-2010-BP-02098BP

PATIENT
  Age: 70 Year
  Sex: Male

DRUGS (2)
  1. FLOMAX [Suspect]
  2. XYZAL [Suspect]
     Indication: POSTNASAL DRIP

REACTIONS (4)
  - DRUG INEFFECTIVE [None]
  - DRY THROAT [None]
  - INHIBITORY DRUG INTERACTION [None]
  - POSTNASAL DRIP [None]
